FAERS Safety Report 9087071 (Version 1)
Quarter: 2013Q1

REPORT INFORMATION
  Report Type: Report from Study
  Country: CA (occurrence: CA)
  Receive Date: 20130131
  Receipt Date: 20130131
  Transmission Date: 20140127
  Serious: Yes (Other)
  Sender: FDA-Public Use
  Company Number: CA-JNJFOC-20130115720

PATIENT
  Sex: Female
  Weight: 59.88 kg

DRUGS (2)
  1. STELARA [Suspect]
     Indication: PSORIASIS
     Route: 058
  2. GLICLAZIDE [Concomitant]
     Dosage: 1/2 500 G ONCE A DAY

REACTIONS (1)
  - Type 2 diabetes mellitus [Unknown]
